FAERS Safety Report 26045043 (Version 1)
Quarter: 2025Q4

REPORT INFORMATION
  Report Type: Spontaneous
  Country: IN (occurrence: IN)
  Receive Date: 20251114
  Receipt Date: 20251114
  Transmission Date: 20260118
  Serious: Yes (Death)
  Sender: ROCHE
  Company Number: IN-ROCHE-10000434919

PATIENT
  Age: 83 Year
  Sex: Female

DRUGS (1)
  1. TECENTRIQ [Suspect]
     Active Substance: ATEZOLIZUMAB
     Indication: Bladder cancer
     Route: 042
     Dates: start: 20251016

REACTIONS (1)
  - Death [Fatal]
